FAERS Safety Report 10525165 (Version 1)
Quarter: 2014Q4

REPORT INFORMATION
  Report Type: Spontaneous
  Country: JP (occurrence: None)
  Receive Date: 20141015
  Receipt Date: 20141015
  Transmission Date: 20150528
  Serious: Yes (Death, Hospitalization, Other)
  Sender: FDA-Public Use
  Company Number: AXC-2014-000604

PATIENT
  Age: 46 Year
  Sex: Female

DRUGS (2)
  1. URSODEOXYCHOLIC ACID (URSODEOXYCHOLIC ACID) UNKNOWN) [Suspect]
     Active Substance: URSODIOL
     Indication: BILIARY CIRRHOSIS PRIMARY
     Dosage: UNK
  2. BEZAFIBRATE [Suspect]
     Active Substance: BEZAFIBRATE
     Indication: BILIARY CIRRHOSIS PRIMARY
     Dosage: UNK

REACTIONS (8)
  - Hypogammaglobulinaemia [None]
  - Drug ineffective [None]
  - Sepsis [None]
  - Pneumonia bacterial [None]
  - Marrow hyperplasia [None]
  - Respiratory tract infection [None]
  - Pleural effusion [None]
  - Bronchitis [None]
